FAERS Safety Report 7897436-3 (Version None)
Quarter: 2011Q4

REPORT INFORMATION
  Report Type: 
  Country: None (occurrence: None)
  Receive Date: 20111107
  Receipt Date: 20111102
  Transmission Date: 20120403
  Serious: Yes (Death)
  Sender: FDA-Public Use
  Company Number: JP-SANOFI-AVENTIS-2011SA008320

PATIENT
  Age: 73 Year
  Sex: Male

DRUGS (4)
  1. TAXOTERE [Suspect]
     Route: 065
     Dates: start: 20101112, end: 20101116
  2. TAXOTERE [Suspect]
     Indication: CHEMOTHERAPY
     Route: 065
     Dates: start: 20101011, end: 20101015
  3. FLUOROURACIL [Concomitant]
  4. CISPLATIN [Concomitant]

REACTIONS (1)
  - INTERSTITIAL LUNG DISEASE [None]
